FAERS Safety Report 25013106 (Version 1)
Quarter: 2025Q1

REPORT INFORMATION
  Report Type: Spontaneous
  Country: US (occurrence: None)
  Receive Date: 20250225
  Receipt Date: 20250225
  Transmission Date: 20250408
  Serious: Yes (Disabling)
  Sender: FDA-CTU
  Company Number: None

PATIENT
  Age: 22 Year
  Sex: Male
  Weight: 63 kg

DRUGS (1)
  1. FINASTERIDE [Suspect]
     Active Substance: FINASTERIDE
     Indication: Alopecia
     Route: 048
     Dates: start: 20230910, end: 20240401

REACTIONS (4)
  - Spermatogenesis abnormal [None]
  - Infertility [None]
  - Quality of life decreased [None]
  - Anhedonia [None]

NARRATIVE: CASE EVENT DATE: 20240401
